FAERS Safety Report 5720725-5 (Version None)
Quarter: 2008Q2

REPORT INFORMATION
  Report Type: 
  Country: None (occurrence: None)
  Receive Date: 20080425
  Receipt Date: 20080425
  Transmission Date: 20081010
  Serious: No
  Sender: FDA-Public Use
  Company Number: None

PATIENT
  Age: 60 Year
  Sex: Male
  Weight: 87.45 kg

DRUGS (5)
  1. MOXIFLOXACIN HCL [Suspect]
     Indication: CHRONIC OBSTRUCTIVE PULMONARY DISEASE
     Dosage: 400 MG   EVERYDAY  PO
     Route: 048
     Dates: start: 20080222, end: 20080303
  2. MOXIFLOXACIN HCL [Suspect]
     Indication: PNEUMONIA
     Dosage: 400 MG   EVERYDAY  PO
     Route: 048
     Dates: start: 20080222, end: 20080303
  3. PREDNISONE TAB [Suspect]
     Indication: ANAPHYLACTIC REACTION
     Dosage: TAPER  EVERYDAY  PO
     Route: 048
     Dates: start: 20080219, end: 20080309
  4. PREDNISONE TAB [Suspect]
     Indication: CHRONIC OBSTRUCTIVE PULMONARY DISEASE
     Dosage: TAPER  EVERYDAY  PO
     Route: 048
     Dates: start: 20080219, end: 20080309
  5. PREDNISONE TAB [Suspect]
     Indication: PNEUMONIA
     Dosage: TAPER  EVERYDAY  PO
     Route: 048
     Dates: start: 20080219, end: 20080309

REACTIONS (2)
  - TENDON RUPTURE [None]
  - TENDONITIS [None]
